FAERS Safety Report 11626816 (Version 5)
Quarter: 2017Q4

REPORT INFORMATION
  Report Type: Spontaneous
  Country: US (occurrence: US)
  Receive Date: 20151013
  Receipt Date: 20171207
  Transmission Date: 20180320
  Serious: No
  Sender: FDA-Public Use
  Company Number: US-PFIZER INC-2015282266

PATIENT
  Sex: Female

DRUGS (1)
  1. XALKORI [Suspect]
     Active Substance: CRIZOTINIB
     Indication: NON-SMALL CELL LUNG CANCER
     Dosage: UNK

REACTIONS (13)
  - Arthralgia [Unknown]
  - Photopsia [Unknown]
  - Gastrooesophageal reflux disease [Unknown]
  - Constipation [Unknown]
  - Diarrhoea [Unknown]
  - Dry eye [Unknown]
  - Vision blurred [Unknown]
  - Neoplasm progression [Unknown]
  - Nausea [Unknown]
  - Dysgeusia [Unknown]
  - Fatigue [Unknown]
  - Vomiting [Unknown]
  - Abdominal pain upper [Unknown]

NARRATIVE: CASE EVENT DATE: 20151026
